FAERS Safety Report 5194153-8 (Version None)
Quarter: 2006Q4

REPORT INFORMATION
  Report Type: 
  Country: None (occurrence: None)
  Receive Date: 20061226
  Receipt Date: 20061218
  Transmission Date: 20070319
  Serious: Yes (Other)
  Sender: FDA-Public Use
  Company Number: HQWYE796221DEC06

PATIENT

DRUGS (1)
  1. ADVIL [Suspect]
     Indication: ARTHRITIS
     Dosage: 800 MG 3X PER 1 DAY, ORAL
     Route: 048

REACTIONS (1)
  - HYPONATRAEMIA [None]
